FAERS Safety Report 5398157-1 (Version None)
Quarter: 2007Q3

REPORT INFORMATION
  Report Type: 
  Country: None (occurrence: None)
  Receive Date: 20070726
  Receipt Date: 20070713
  Transmission Date: 20080115
  Serious: Yes (Hospitalization)
  Sender: FDA-Public Use
  Company Number: FR-SHR-FR-2007-026584

PATIENT
  Age: 18 Year
  Sex: Female
  Weight: 58 kg

DRUGS (7)
  1. SOTALOL HYDROCHLORIDE [Suspect]
     Indication: ATRIAL FIBRILLATION
     Dosage: 40 MG, 1X/DAY
     Route: 048
     Dates: start: 20030601, end: 20070101
  2. PLAQUENIL [Concomitant]
     Indication: POLYARTHRITIS
  3. NEXIUM [Concomitant]
  4. SOLU-MEDROL [Concomitant]
     Dosage: 1 MG/KG/DAY
     Dates: start: 20060101, end: 20070501
  5. SOLU-MEDROL [Concomitant]
     Dosage: 20 MG, 1X/DAY
     Dates: start: 20070501
  6. POTASSIUM CHLORIDE [Concomitant]
  7. OTHER HAEMATOLOGICAL AGENTS [Concomitant]
     Indication: ATRIAL FIBRILLATION
     Dates: end: 20060101

REACTIONS (7)
  - ANAEMIA [None]
  - ARTHRALGIA [None]
  - C-REACTIVE PROTEIN INCREASED [None]
  - INTERSTITIAL LUNG DISEASE [None]
  - OEDEMA PERIPHERAL [None]
  - SYSTEMIC LUPUS ERYTHEMATOSUS [None]
  - WEIGHT DECREASED [None]
